FAERS Safety Report 18152050 (Version 4)
Quarter: 2021Q1

REPORT INFORMATION
  Report Type: Spontaneous
  Country: US (occurrence: US)
  Receive Date: 20200814
  Receipt Date: 20210323
  Transmission Date: 20210419
  Serious: Yes (Hospitalization)
  Sender: FDA-Public Use
  Company Number: US-BIOMARINAP-US-2020-130653

PATIENT
  Age: 22 Year
  Sex: Female
  Weight: 30.84 kg

DRUGS (2)
  1. NAGLAZYME [Suspect]
     Active Substance: GALSULFASE
     Indication: MUCOPOLYSACCHARIDOSIS VI
     Dosage: 35 MILLIGRAM, QW
     Route: 042
     Dates: start: 20161213
  2. NAGLAZYME [Suspect]
     Active Substance: GALSULFASE
     Dosage: UNK UNK, QW
     Route: 042
     Dates: start: 20050809

REACTIONS (2)
  - Polyp [Unknown]
  - Gastrooesophageal reflux disease [Unknown]

NARRATIVE: CASE EVENT DATE: 20200622
